FAERS Safety Report 4679477-2 (Version None)
Quarter: 2005Q2

REPORT INFORMATION
  Report Type: 
  Country: None (occurrence: None)
  Receive Date: 20050602
  Receipt Date: 20040628
  Transmission Date: 20051028
  Serious: Yes (Hospitalization)
  Sender: FDA-Public Use
  Company Number: PL-SANOFI-SYNTHELABO-D01200402393

PATIENT
  Sex: Male
  Weight: 76 kg

DRUGS (5)
  1. SR57746 OR PLACEBO [Suspect]
     Route: 048
     Dates: start: 20040413, end: 20040615
  2. OXALIPLATIN [Suspect]
     Route: 042
     Dates: start: 20040524, end: 20040524
  3. FLUOROURACIL [Suspect]
     Dosage: 400 MG/M2 AS IV BOLUS THEN 600 MG/M2 AS 22 HOURS CONTINUOUS INFUSION D1-D2 Q2W
     Route: 042
     Dates: start: 20040524, end: 20040526
  4. LEUCOVORIN [Suspect]
     Dosage: 200 MG/M2 AS 2 HOURS INFUSION ON D1-D2 Q2W
     Route: 042
     Dates: start: 20040524, end: 20040525
  5. ONDANSETRON [Concomitant]
     Dosage: UNK
     Route: 065
     Dates: start: 20040524, end: 20040525

REACTIONS (3)
  - INJECTION SITE REACTION [None]
  - PAIN IN EXTREMITY [None]
  - SKIN HYPERPIGMENTATION [None]
